FAERS Safety Report 8121044-2 (Version None)
Quarter: 2012Q1

REPORT INFORMATION
  Report Type: 
  Country: None (occurrence: None)
  Receive Date: 20120208
  Receipt Date: 20111122
  Transmission Date: 20120608
  Serious: Yes (Other)
  Sender: FDA-Public Use
  Company Number: CA-JNJFOC-20120109740

PATIENT
  Sex: Male
  Weight: 85 kg

DRUGS (5)
  1. CRESTOR [Concomitant]
     Route: 048
  2. MULTIVITS [Concomitant]
     Dosage: DIVIDED DOSE, ONCE DAILY
     Route: 048
  3. HYDROCHLOROTHIAZIDE [Concomitant]
     Route: 048
  4. REMICADE [Suspect]
     Indication: ANKYLOSING SPONDYLITIS
     Route: 042
     Dates: start: 20061127
  5. ADVAIR DISKUS 100/50 [Concomitant]
     Route: 065

REACTIONS (3)
  - DIPLOPIA [None]
  - FATIGUE [None]
  - TINNITUS [None]
